FAERS Safety Report 8623118-6 (Version None)
Quarter: 2012Q3

REPORT INFORMATION
  Report Type: 
  Country: None (occurrence: None)
  Receive Date: 20120827
  Receipt Date: 20120816
  Transmission Date: 20120928
  Serious: Yes (Other)
  Sender: FDA-Public Use
  Company Number: US-JNJFOC-20120809958

PATIENT
  Age: 31 Year
  Sex: Female
  Weight: 57.52 kg

DRUGS (6)
  1. KLONOPIN [Concomitant]
     Dosage: 0.5 MG IN AM AND 0.75 MG IN PM
     Route: 048
  2. DEPO-PROVERA [Concomitant]
     Dosage: 0.5 MG IN AM AND 0.75 MG IN PM
     Route: 030
  3. INVEGA [Suspect]
     Indication: BIPOLAR DISORDER
     Route: 048
  4. EFFEXOR [Concomitant]
     Route: 048
  5. INVEGA [Suspect]
     Route: 048
     Dates: start: 20120601, end: 20120101
  6. LORATADINE [Concomitant]
     Dosage: 0.5 MG IN AM AND 0.75 MG IN PM
     Route: 048

REACTIONS (1)
  - WEIGHT INCREASED [None]
